FAERS Safety Report 5125263-9 (Version None)
Quarter: 2006Q4

REPORT INFORMATION
  Report Type: 
  Country: None (occurrence: None)
  Receive Date: 20061006
  Receipt Date: 20060925
  Transmission Date: 20070319
  Serious: Yes (Death, Hospitalization)
  Sender: FDA-Public Use
  Company Number: 2006001838

PATIENT
  Age: 83 Year
  Sex: Female

DRUGS (1)
  1. TARCEVA (TABLET) (ERLONITINIB) [Suspect]
     Indication: NON-SMALL CELL LUNG CANCER
     Dosage: 150 MG (QD), ORAL
     Route: 048

REACTIONS (3)
  - DEHYDRATION [None]
  - DYSPNOEA [None]
  - LOSS OF CONSCIOUSNESS [None]
